FAERS Safety Report 5416343-9 (Version None)
Quarter: 2007Q3

REPORT INFORMATION
  Report Type: 
  Country: None (occurrence: None)
  Receive Date: 20070816
  Receipt Date: 20070810
  Transmission Date: 20080115
  Serious: Yes (Disabling, Other)
  Sender: FDA-Public Use
  Company Number: PHNU2007DE02805

PATIENT
  Sex: Male

DRUGS (3)
  1. ZOMETA [Suspect]
     Indication: METASTASES TO BONE
     Dosage: 4 MG, UNK
     Route: 042
     Dates: start: 20000701
  2. PALLADON [Concomitant]
     Route: 065
  3. CLINDAMYCIN HCL [Concomitant]
     Route: 065

REACTIONS (10)
  - BONE LESION [None]
  - FISTULA [None]
  - IMPAIRED HEALING [None]
  - MICROBIOLOGY TEST [None]
  - OSTEITIS [None]
  - OSTEONECROSIS [None]
  - PAIN IN JAW [None]
  - PURULENT DISCHARGE [None]
  - TOOTH EXTRACTION [None]
  - X-RAY DENTAL [None]
